FAERS Safety Report 4789827-4 (Version None)
Quarter: 2005Q4

REPORT INFORMATION
  Report Type: 
  Country: None (occurrence: None)
  Receive Date: 20051006
  Receipt Date: 20050912
  Transmission Date: 20060501
  Serious: Yes (Hospitalization)
  Sender: FDA-Public Use
  Company Number: 2005018344

PATIENT
  Age: 45 Year
  Sex: Female
  Weight: 85 kg

DRUGS (4)
  1. QUILONUM RETARD [Suspect]
     Dosage: 450MG SEE DOSAGE TEXT
     Route: 048
     Dates: start: 20050912, end: 20050912
  2. SEROQUEL [Suspect]
     Dosage: 100MG SEE DOSAGE TEXT
     Route: 048
     Dates: start: 20050912, end: 20050912
  3. ZOPICLON [Suspect]
     Dosage: 7.5MG SEE DOSAGE TEXT
     Route: 048
     Dates: start: 20050912, end: 20050912
  4. ALCOHOL [Suspect]
     Route: 048
     Dates: start: 20050912, end: 20050912

REACTIONS (7)
  - ALCOHOL USE [None]
  - ELECTROCARDIOGRAM QT PROLONGED [None]
  - HYPOXIA [None]
  - INTENTIONAL DRUG MISUSE [None]
  - OVERDOSE [None]
  - SOPOR [None]
  - SUICIDE ATTEMPT [None]
